FAERS Safety Report 10870711 (Version 1)
Quarter: 2015Q1

REPORT INFORMATION
  Report Type: Spontaneous
  Country: CN (occurrence: None)
  Receive Date: 20150223
  Receipt Date: 20150223
  Transmission Date: 20150721
  Serious: Yes (Other)
  Sender: FDA-Public Use
  Company Number: 2749536

PATIENT
  Age: 61 Year
  Sex: Male

DRUGS (8)
  1. OXALIPLATIN. [Suspect]
     Active Substance: OXALIPLATIN
     Indication: HEPATIC CANCER METASTATIC
     Dosage: 85 MG/M 2 MILLIGRAM(S)/SQ.METER (1 WEEK)
     Route: 041
     Dates: start: 20121205
  2. FLUOROURACIL. [Suspect]
     Active Substance: FLUOROURACIL
     Indication: HEPATOCELLULAR CARCINOMA
     Route: 013
     Dates: start: 20100512
  3. CAMPTOTHECIN [Suspect]
     Active Substance: CAMPTOTHECIN
     Indication: HEPATOCELLULAR CARCINOMA
  4. FLUOROURACIL. [Suspect]
     Active Substance: FLUOROURACIL
     Indication: HEPATIC CANCER METASTATIC
     Route: 013
     Dates: start: 20100512
  5. MITOMYCIN. [Suspect]
     Active Substance: MITOMYCIN
     Indication: HEPATOCELLULAR CARCINOMA
  6. LAMIVUDINE. [Concomitant]
     Active Substance: LAMIVUDINE
  7. SORAFENIB [Suspect]
     Active Substance: SORAFENIB
     Indication: HEPATIC CANCER METASTATIC
     Dosage: 400 MG MILLIGRAM(S)  (2 DAY)
     Route: 048
     Dates: end: 20120514
  8. CALCIUM FOLINATE [Suspect]
     Active Substance: LEUCOVORIN CALCIUM
     Indication: HEPATIC CANCER METASTATIC
     Dosage: 200 MG/M 2 MILLIGRAM(S)/SQ.METER (1 WEEK)
     Route: 041
     Dates: start: 20121205

REACTIONS (4)
  - Metastases to lung [None]
  - Condition aggravated [None]
  - Hepatitis B [None]
  - Metastases to central nervous system [None]

NARRATIVE: CASE EVENT DATE: 20130217
